FAERS Safety Report 7207211-0 (Version None)
Quarter: 2011Q1

REPORT INFORMATION
  Report Type: 
  Country: None (occurrence: None)
  Receive Date: 20110103
  Receipt Date: 20101230
  Transmission Date: 20110831
  Serious: Yes (Hospitalization)
  Sender: FDA-Public Use
  Company Number: IT-ROCHE-749118

PATIENT
  Sex: Male

DRUGS (5)
  1. PHENYLEPHRINE [Concomitant]
  2. TAVOR [Concomitant]
     Route: 048
  3. AVASTIN [Suspect]
     Indication: MACULAR OEDEMA
     Dosage: FREQUENCY REPORTED AS TOTAL
     Route: 047
     Dates: start: 20101216, end: 20101216
  4. EXOCIN [Concomitant]
     Route: 047
  5. BETABIOPTAL [Concomitant]
     Route: 047

REACTIONS (2)
  - HYPERTONIA [None]
  - CORNEAL OEDEMA [None]
